FAERS Safety Report 5584497-X (Version None)
Quarter: 2008Q1

REPORT INFORMATION
  Report Type: 
  Country: None (occurrence: None)
  Receive Date: 20080103
  Receipt Date: 20080103
  Transmission Date: 20080703
  Serious: Yes (Life-Threatening, Disabling, Other)
  Sender: FDA-Public Use
  Company Number: 2007AL005484

PATIENT
  Age: 34 Year
  Sex: Female

DRUGS (1)
  1. FLUOXETINE [Suspect]
     Dosage: 20 MG;QD; PO
     Route: 048
     Dates: start: 20071129, end: 20071211

REACTIONS (5)
  - ANXIETY [None]
  - DYSTONIA [None]
  - MALAISE [None]
  - PANIC REACTION [None]
  - SUICIDAL IDEATION [None]
